FAERS Safety Report 7253615-X (Version None)
Quarter: 2011Q1

REPORT INFORMATION
  Report Type: 
  Country: None (occurrence: None)
  Receive Date: 20110129
  Receipt Date: 20100309
  Transmission Date: 20110831
  Serious: No
  Sender: FDA-Public Use
  Company Number: US-ABBOTT-10P-163-0631397-00

PATIENT
  Sex: Male
  Weight: 93.07 kg

DRUGS (5)
  1. HUMIRA [Suspect]
     Indication: PSORIASIS
     Dates: start: 20070101
  2. SLO-BID [Concomitant]
     Indication: ASTHMA
  3. HUMIRA [Suspect]
     Indication: RHEUMATOID ARTHRITIS
  4. ADVAIR [Concomitant]
     Indication: ASTHMA
  5. PREDNISONE [Concomitant]
     Indication: ASTHMA

REACTIONS (1)
  - PSORIASIS [None]
